FAERS Safety Report 4323277-X (Version None)
Quarter: 2004Q1

REPORT INFORMATION
  Report Type: 
  Country: None (occurrence: None)
  Receive Date: 20040324
  Receipt Date: 20040324
  Transmission Date: 20041129
  Serious: No
  Sender: FDA-Public Use
  Company Number: None

PATIENT
  Age: 66 Year
  Sex: Female
  Weight: 54.8852 kg

DRUGS (6)
  1. EXEMESTANE 25 MG [Suspect]
     Indication: BREAST CANCER
     Dosage: 25 MG DAILY ORAL
     Route: 048
     Dates: start: 20040114, end: 20040323
  2. PEPTO BISMOL [Concomitant]
  3. IMODIUM [Concomitant]
  4. SUDAFED S.A. [Concomitant]
  5. TYLENOL (CAPLET) [Concomitant]
  6. LOPERAMIDE HCL [Concomitant]

REACTIONS (3)
  - DIARRHOEA [None]
  - FREQUENT BOWEL MOVEMENTS [None]
  - INFLUENZA [None]
